FAERS Safety Report 23867919 (Version 1)
Quarter: 2024Q2

REPORT INFORMATION
  Report Type: Spontaneous
  Country: US (occurrence: US)
  Receive Date: 20240517
  Receipt Date: 20240517
  Transmission Date: 20240716
  Serious: Yes (Other)
  Sender: FDA-Public Use
  Company Number: US-ELI_LILLY_AND_COMPANY-US202405003134

PATIENT
  Sex: Female

DRUGS (1)
  1. TALTZ [Suspect]
     Active Substance: IXEKIZUMAB
     Indication: Psoriasis
     Dosage: UNK UNK, UNKNOWN
     Route: 065
     Dates: start: 202401

REACTIONS (5)
  - Diarrhoea [Not Recovered/Not Resolved]
  - Abdominal pain upper [Not Recovered/Not Resolved]
  - Flatulence [Not Recovered/Not Resolved]
  - Dizziness [Not Recovered/Not Resolved]
  - Inflammatory bowel disease [Unknown]
